FAERS Safety Report 8128955-2 (Version None)
Quarter: 2012Q1

REPORT INFORMATION
  Report Type: 
  Country: None (occurrence: None)
  Receive Date: 20120210
  Receipt Date: 20110721
  Transmission Date: 20120608
  Serious: Yes (Other)
  Sender: FDA-Public Use
  Company Number: US-BRISTOL-MYERS SQUIBB COMPANY-15854292

PATIENT
  Age: 38 Year
  Sex: Female
  Weight: 114 kg

DRUGS (1)
  1. ORENCIA [Suspect]
     Indication: RHEUMATOID ARTHRITIS
     Route: 042
     Dates: start: 20110623, end: 20110623

REACTIONS (4)
  - URTICARIA [None]
  - OROPHARYNGEAL DISCOMFORT [None]
  - RASH [None]
  - PRURITUS [None]
